FAERS Safety Report 20835928 (Version 1)
Quarter: 2022Q2

REPORT INFORMATION
  Report Type: 
  Country: None (occurrence: None)
  Receive Date: 20220516
  Receipt Date: 20220516
  Transmission Date: 20220721
  Serious: No
  Sender: FDA-Public Use
  Company Number: DE-ROCHE-2740843

PATIENT

DRUGS (15)
  1. OCREVUS [Suspect]
     Active Substance: OCRELIZUMAB
     Dosage: 600 MG 330 DAYS
     Dates: start: 20201208
  2. OCREVUS [Suspect]
     Active Substance: OCRELIZUMAB
  3. COMIRNATY [Suspect]
     Active Substance: TOZINAMERAN
     Dosage: 1ST VACCINE
  4. COMIRNATY [Suspect]
     Active Substance: TOZINAMERAN
     Dosage: 2ND VACCINE
  5. COMIRNATY [Suspect]
     Active Substance: TOZINAMERAN
     Dosage: 3RD VACCINE
  6. COMIRNATY [Suspect]
     Active Substance: TOZINAMERAN
     Dosage: 4TH VACCINE
     Dates: start: 20210830, end: 20210830
  7. KEPPRA [Concomitant]
     Active Substance: LEVETIRACETAM
  8. FOLIC ACID [Concomitant]
     Active Substance: FOLIC ACID
  9. VITAMIN D3 [Concomitant]
     Active Substance: CHOLECALCIFEROL
  10. PREGABALIN [Concomitant]
     Active Substance: PREGABALIN
  11. PANTOPRAZOLE SODIUM [Concomitant]
     Active Substance: PANTOPRAZOLE SODIUM
  12. SERTRALINE HYDROCHLORIDE [Concomitant]
     Active Substance: SERTRALINE HYDROCHLORIDE
  13. AMITRIPTYLINE [Concomitant]
     Active Substance: AMITRIPTYLINE
  14. TORSEMIDE [Concomitant]
     Active Substance: TORSEMIDE
  15. TROSPIUM CHLORIDE [Concomitant]
     Active Substance: TROSPIUM CHLORIDE

REACTIONS (13)
  - Multiple sclerosis relapse [None]
  - Urinary retention [None]
  - Off label use [None]
  - Muscle spasticity [None]
  - Pain [None]
  - Heart rate increased [None]
  - Respiration abnormal [None]
  - Listless [None]
  - Sleep deficit [None]
  - SARS-CoV-2 antibody test negative [None]
  - Lymphocyte count decreased [None]
  - Headache [None]
  - COVID-19 [None]

NARRATIVE: CASE EVENT DATE: 20201208
